FAERS Safety Report 24564294 (Version 1)
Quarter: 2024Q4

REPORT INFORMATION
  Report Type: Spontaneous
  Country: US (occurrence: None)
  Receive Date: 20241029
  Receipt Date: 20241029
  Transmission Date: 20250115
  Serious: Yes (Hospitalization)
  Sender: Public
  Company Number: None

PATIENT
  Age: 65 Year
  Sex: Male

DRUGS (11)
  1. ACTEMRA [Suspect]
     Active Substance: TOCILIZUMAB
     Dates: start: 20230510
  2. BETHANECHOL TAB 50MG [Concomitant]
  3. CHLORHEX GLU SOL 0.12% [Concomitant]
  4. ENBREL [Concomitant]
     Active Substance: ETANERCEPT
  5. FINASTERIDE [Concomitant]
     Active Substance: FINASTERIDE
  6. METHYLPRED TAB 4MG [Concomitant]
  7. OSELTAMIVIR [Concomitant]
     Active Substance: OSELTAMIVIR
  8. PFIZER VACC INJ COVID-19 [Concomitant]
  9. PREDNISONE [Concomitant]
     Active Substance: PREDNISONE
  10. PREDNISONE TABS 5MG [Concomitant]
  11. SILDENAFIL TAB 100MG [Concomitant]

REACTIONS (3)
  - Loss of personal independence in daily activities [None]
  - Pain [None]
  - Product dose omission issue [None]

NARRATIVE: CASE EVENT DATE: 20240922
